FAERS Safety Report 12962090 (Version 1)
Quarter: 2016Q4

REPORT INFORMATION
  Report Type: Spontaneous
  Country: US (occurrence: US)
  Receive Date: 20161121
  Receipt Date: 20161121
  Transmission Date: 20170207
  Serious: No
  Sender: FDA-Public Use
  Company Number: US-COLLEGIUM PHARMACEUTICAL, INC.-2016CGM00009

PATIENT
  Age: 48 Year
  Sex: Male

DRUGS (7)
  1. DIAZEPAM. [Concomitant]
     Active Substance: DIAZEPAM
  2. XTAMPZA ER [Suspect]
     Active Substance: OXYCODONE
     Indication: BACK PAIN
  3. TESTOSTERONE. [Concomitant]
     Active Substance: TESTOSTERONE
  4. XTAMPZA ER [Suspect]
     Active Substance: OXYCODONE
     Indication: PAIN IN EXTREMITY
     Dosage: 1 CAPSULES, 2X/DAY
     Route: 048
  5. MOVANTIK [Concomitant]
     Active Substance: NALOXEGOL OXALATE
  6. XTAMPZA ER [Suspect]
     Active Substance: OXYCODONE
     Indication: ARTHRALGIA
  7. OXYCODONE [Concomitant]
     Active Substance: OXYCODONE

REACTIONS (3)
  - Irritability [Recovered/Resolved]
  - Abdominal pain [Recovered/Resolved]
  - Mood swings [Recovered/Resolved]
